FAERS Safety Report 21737595 (Version 1)
Quarter: 2022Q4

REPORT INFORMATION
  Report Type: Spontaneous
  Country: US (occurrence: US)
  Receive Date: 20221216
  Receipt Date: 20221216
  Transmission Date: 20230113
  Serious: No
  Sender: FDA-Public Use
  Company Number: US-SPECGX-T202201615

PATIENT
  Age: 83 Year
  Sex: Female
  Weight: 52 kg

DRUGS (3)
  1. FENTANYL TRANSDERMAL SYSTEM [Suspect]
     Active Substance: FENTANYL
     Indication: Impaired gastric emptying
     Dosage: 25 MCG/HR
     Route: 062
  2. FENTANYL TRANSDERMAL SYSTEM [Suspect]
     Active Substance: FENTANYL
     Indication: Impaired gastric emptying
     Dosage: UNK
     Route: 062
  3. OMEPRAZOLE [Concomitant]
     Active Substance: OMEPRAZOLE
     Indication: Gastrooesophageal reflux disease
     Dosage: 40 MILLIGRAM, QD
     Route: 048

REACTIONS (4)
  - Aphonia [Unknown]
  - Illness [Unknown]
  - Application site laceration [Unknown]
  - Product adhesion issue [Unknown]
